FAERS Safety Report 18425023 (Version 6)
Quarter: 2021Q2

REPORT INFORMATION
  Report Type: Other
  Country: CH (occurrence: CH)
  Receive Date: 20201026
  Receipt Date: 20210430
  Transmission Date: 20210717
  Serious: Yes (Other)
  Sender: FDA-Public Use
  Company Number: CH-ROCHE-2617451

PATIENT
  Age: 32 Year
  Sex: Female
  Weight: 30 kg

DRUGS (10)
  1. VITAMIN D3 [Concomitant]
     Active Substance: CHOLECALCIFEROL
  2. XYZAL [Concomitant]
     Active Substance: LEVOCETIRIZINE DIHYDROCHLORIDE
  3. STILNOX [Concomitant]
     Active Substance: ZOLPIDEM TARTRATE
  4. RISDIPLAM. [Suspect]
     Active Substance: RISDIPLAM
     Indication: SPINAL MUSCULAR ATROPHY
     Route: 048
     Dates: start: 20200512, end: 20210217
  5. ANTRAMUPS [Concomitant]
     Active Substance: OMEPRAZOLE
  6. SELENASE [Concomitant]
  7. REMERON [Concomitant]
     Active Substance: MIRTAZAPINE
  8. FLUIMUCIL [Concomitant]
     Active Substance: ACETYLCYSTEINE
  9. VANCOMYCIN [Concomitant]
     Active Substance: VANCOMYCIN
     Indication: BACTERAEMIA
     Route: 042
     Dates: start: 20200612
  10. BEPANTHENE [Concomitant]
     Active Substance: DEXPANTHENOL

REACTIONS (13)
  - Nausea [Unknown]
  - Vulvovaginal dryness [Recovered/Resolved]
  - Throat irritation [Unknown]
  - Fatigue [Recovering/Resolving]
  - Vulvovaginal burning sensation [Recovered/Resolved]
  - Gastrooesophageal reflux disease [Recovered/Resolved]
  - Acne [Unknown]
  - Vulvovaginal pruritus [Recovered/Resolved]
  - Infection susceptibility increased [Unknown]
  - Inflammation [Unknown]
  - Menstruation irregular [Not Recovered/Not Resolved]
  - Pyrexia [Not Recovered/Not Resolved]
  - C-reactive protein increased [Recovering/Resolving]

NARRATIVE: CASE EVENT DATE: 202008
